FAERS Safety Report 25740058 (Version 1)
Quarter: 2025Q3

REPORT INFORMATION
  Report Type: Other
  Country: TN (occurrence: TN)
  Receive Date: 20250829
  Receipt Date: 20250829
  Transmission Date: 20251021
  Serious: Yes (Other)
  Sender: SANKALP LIFECARE INC.
  Company Number: TN-Sankalp Lifecare Inc.-2183464

PATIENT
  Sex: Male

DRUGS (1)
  1. LEVOCETIRIZINE DIHYDROCHLORIDE [Suspect]
     Active Substance: LEVOCETIRIZINE DIHYDROCHLORIDE
     Indication: Foetal exposure during pregnancy

REACTIONS (2)
  - Pancytopenia [Recovered/Resolved]
  - Foetal exposure during pregnancy [Unknown]
